FAERS Safety Report 16434240 (Version 1)
Quarter: 2019Q2

REPORT INFORMATION
  Report Type: Spontaneous
  Country: IT (occurrence: IT)
  Receive Date: 20190614
  Receipt Date: 20190614
  Transmission Date: 20190711
  Serious: Yes (Other)
  Sender: FDA-Public Use
  Company Number: IT-ENDO PHARMACEUTICALS INC-2019-105499

PATIENT
  Sex: Female

DRUGS (1)
  1. AVEED [Suspect]
     Active Substance: TESTOSTERONE UNDECANOATE
     Indication: TRANSGENDER HORMONAL THERAPY
     Dosage: UNK UNKNOWN, UNKNOWN
     Route: 030

REACTIONS (2)
  - Uterine haemorrhage [Unknown]
  - Off label use [Unknown]
